FAERS Safety Report 10424095 (Version 2)
Quarter: 2014Q3

REPORT INFORMATION
  Report Type: Report from Study
  Country: CN (occurrence: CN)
  Receive Date: 20140902
  Receipt Date: 20140902
  Transmission Date: 20150326
  Serious: Yes (Hospitalization)
  Sender: FDA-Public Use
  Company Number: CN-AMGEN-CHNCT2014047640

PATIENT
  Age: 48 Year
  Sex: Male

DRUGS (6)
  1. ROCALTROL [Concomitant]
     Active Substance: CALCITRIOL
     Dosage: 0.25 MUG, QD
     Route: 065
     Dates: start: 2008
  2. CALCIUM ACETATE. [Concomitant]
     Active Substance: CALCIUM ACETATE
     Dosage: 1.334 G, TID
     Route: 065
     Dates: start: 2013
  3. EPOETIN ALFA [Concomitant]
     Active Substance: ERYTHROPOIETIN
     Indication: NEPHROGENIC ANAEMIA
     Dosage: 9000 IU, QWK
     Route: 042
     Dates: start: 20131216, end: 20140209
  4. DARBEPOETIN ALFA [Suspect]
     Active Substance: DARBEPOETIN ALFA
     Indication: NEPHROGENIC ANAEMIA
     Dosage: 20 MUG, QWK
     Route: 042
     Dates: start: 20140210
  5. DIPYRIDAMOLE. [Concomitant]
     Active Substance: DIPYRIDAMOLE
     Dosage: 25 MG, BID
     Route: 065
     Dates: start: 20140613
  6. LEVOCARNITINE. [Concomitant]
     Active Substance: LEVOCARNITINE
     Dosage: 1000 MG, 2 TIMES/WK
     Route: 065
     Dates: start: 2012

REACTIONS (3)
  - Arteriovenous fistula thrombosis [Unknown]
  - Arteriovenous fistula occlusion [Recovering/Resolving]
  - Arteriovenous fistula operation [Recovering/Resolving]

NARRATIVE: CASE EVENT DATE: 20140613
